FAERS Safety Report 19797666 (Version 4)
Quarter: 2021Q4

REPORT INFORMATION
  Report Type: Report from Study
  Country: JP (occurrence: JP)
  Receive Date: 20210906
  Receipt Date: 20211111
  Transmission Date: 20220304
  Serious: Yes (Hospitalization)
  Sender: FDA-Public Use
  Company Number: NVSJ2021JP012798

PATIENT
  Age: 47 Year
  Sex: Male

DRUGS (26)
  1. ELTROMBOPAG OLAMINE [Suspect]
     Active Substance: ELTROMBOPAG OLAMINE
     Indication: Aplastic anaemia
     Dosage: 75 MG
     Route: 048
     Dates: start: 20200611, end: 20201201
  2. ELTROMBOPAG OLAMINE [Suspect]
     Active Substance: ELTROMBOPAG OLAMINE
     Dosage: 100 MG
     Route: 048
     Dates: start: 20201202, end: 20210411
  3. NEORAL [Suspect]
     Active Substance: CYCLOSPORINE
     Indication: Aplastic anaemia
     Dosage: 400 MG
     Route: 048
     Dates: start: 20200528
  4. VONOPRAZAN FUMARATE [Concomitant]
     Active Substance: VONOPRAZAN FUMARATE
     Indication: Product used for unknown indication
     Dosage: 10 MG
     Route: 048
     Dates: start: 20200528
  5. HUMAN RED BLOOD CELL [Concomitant]
     Active Substance: HUMAN RED BLOOD CELL
     Indication: Product used for unknown indication
     Dosage: 840 ML, 3 TIMES A MONTH
     Route: 065
     Dates: start: 20200514, end: 20200610
  6. HUMAN RED BLOOD CELL [Concomitant]
     Active Substance: HUMAN RED BLOOD CELL
     Dosage: 1400 ML, 5 TIMES A MONTH
     Route: 065
     Dates: start: 20200611, end: 20200708
  7. HUMAN RED BLOOD CELL [Concomitant]
     Active Substance: HUMAN RED BLOOD CELL
     Dosage: 1680 ML,  6 TIMES A MONTH
     Route: 065
     Dates: start: 20200709, end: 20200805
  8. HUMAN RED BLOOD CELL [Concomitant]
     Active Substance: HUMAN RED BLOOD CELL
     Dosage: 280 ML,  ONCE A MONTH
     Route: 065
     Dates: start: 20200806, end: 20200902
  9. HUMAN RED BLOOD CELL [Concomitant]
     Active Substance: HUMAN RED BLOOD CELL
     Dosage: 280 ML,  ONCE A MONTH
     Route: 065
     Dates: start: 20201029, end: 20201125
  10. HUMAN RED BLOOD CELL [Concomitant]
     Active Substance: HUMAN RED BLOOD CELL
     Dosage: 2520  ML, 9 TIMES A MONTH
     Route: 065
     Dates: start: 20201126, end: 20201225
  11. HUMAN RED BLOOD CELL [Concomitant]
     Active Substance: HUMAN RED BLOOD CELL
     Dosage: 1120 ML, 4 TIMES A MONTH
     Route: 065
     Dates: start: 20201226, end: 20210120
  12. HUMAN RED BLOOD CELL [Concomitant]
     Active Substance: HUMAN RED BLOOD CELL
     Dosage: 1120 ML, 4  TIMES A MONTH
     Route: 065
     Dates: start: 20210121, end: 20210217
  13. HUMAN RED BLOOD CELL [Concomitant]
     Active Substance: HUMAN RED BLOOD CELL
     Dosage: 1120 ML, 4 TIMES A MONTH
     Route: 065
     Dates: start: 20210218, end: 20210317
  14. HUMAN RED BLOOD CELL [Concomitant]
     Active Substance: HUMAN RED BLOOD CELL
     Dosage: 1120 ML, 4 TIMES A MONTH
     Route: 065
     Dates: start: 20210318, end: 20210414
  15. HUMAN RED BLOOD CELL [Concomitant]
     Active Substance: HUMAN RED BLOOD CELL
     Dosage: 1120 ML, 4  TIMES A MONTH
     Route: 065
     Dates: start: 20210415, end: 20210512
  16. PLATELETS [Concomitant]
     Active Substance: HUMAN PLATELET, ALLOGENIC
     Indication: Product used for unknown indication
     Dosage: 1200 ML, 6 TIMES A MONTH
     Route: 065
     Dates: start: 20200514, end: 20200610
  17. PLATELETS [Concomitant]
     Active Substance: HUMAN PLATELET, ALLOGENIC
     Dosage: 1000 ML, 5 TIMES A MONTH
     Route: 065
     Dates: start: 20200611, end: 20200708
  18. PLATELETS [Concomitant]
     Active Substance: HUMAN PLATELET, ALLOGENIC
     Dosage: 400 ML, TWICE A MONTH
     Route: 065
     Dates: start: 20200709, end: 20200805
  19. PLATELETS [Concomitant]
     Active Substance: HUMAN PLATELET, ALLOGENIC
     Dosage: 400 ML, TWICE A MONTH
     Route: 065
     Dates: start: 20200806, end: 20200902
  20. PLATELETS [Concomitant]
     Active Substance: HUMAN PLATELET, ALLOGENIC
     Dosage: 200 ML, ONCE A MONTH
     Route: 065
     Dates: start: 20201029, end: 20201125
  21. PLATELETS [Concomitant]
     Active Substance: HUMAN PLATELET, ALLOGENIC
     Dosage: 1600 ML, 8 TIMES A MONTH
     Route: 065
     Dates: start: 20201126, end: 20201225
  22. PLATELETS [Concomitant]
     Active Substance: HUMAN PLATELET, ALLOGENIC
     Dosage: 1200 ML, 6 TIMES A MONTH
     Route: 065
     Dates: start: 20201226, end: 20210120
  23. PLATELETS [Concomitant]
     Active Substance: HUMAN PLATELET, ALLOGENIC
     Dosage: 800 ML, 4 TIMES A MONTH
     Route: 065
     Dates: start: 20210121, end: 20210217
  24. PLATELETS [Concomitant]
     Active Substance: HUMAN PLATELET, ALLOGENIC
     Dosage: 800 ML, 4 TIMES A MONTH
     Route: 065
     Dates: start: 20210218, end: 20210317
  25. PLATELETS [Concomitant]
     Active Substance: HUMAN PLATELET, ALLOGENIC
     Dosage: 800 ML,4 TIMES A MONTH
     Route: 065
     Dates: start: 20210318, end: 20210414
  26. PLATELETS [Concomitant]
     Active Substance: HUMAN PLATELET, ALLOGENIC
     Dosage: 800 ML, 4 TIMES A MONTH
     Route: 065
     Dates: start: 20210415, end: 20210512

REACTIONS (4)
  - Aplastic anaemia [Not Recovered/Not Resolved]
  - Condition aggravated [Not Recovered/Not Resolved]
  - Cytopenia [Unknown]
  - Product use in unapproved indication [Unknown]

NARRATIVE: CASE EVENT DATE: 20200528
